FAERS Safety Report 8852072 (Version 2)
Quarter: 2013Q1

REPORT INFORMATION
  Report Type: Spontaneous
  Country: US (occurrence: US)
  Receive Date: 20121022
  Receipt Date: 20130313
  Transmission Date: 20140127
  Serious: Yes (Hospitalization, Other)
  Sender: FDA-Public Use
  Company Number: US-BAYER-2012-107815

PATIENT
  Age: 36 Year
  Sex: Female
  Weight: 58.96 kg

DRUGS (11)
  1. YAZ [Suspect]
     Indication: CONTRACEPTION
     Dosage: UNK
     Dates: start: 200906, end: 201205
  2. YAZ [Suspect]
     Indication: PREMENSTRUAL SYNDROME
  3. YAZ [Suspect]
     Indication: PREMENSTRUAL DYSPHORIC DISORDER
  4. EFFEXOR [Concomitant]
     Dosage: UNK
     Dates: start: 2001
  5. ZOLOFT [Concomitant]
     Dosage: UNK
     Dates: start: 2001
  6. SIMVASTATIN [Concomitant]
     Indication: BLOOD CHOLESTEROL INCREASED
     Dosage: UNK
     Dates: start: 2010, end: 2012
  7. COQ10 [Concomitant]
  8. FISH OIL [Concomitant]
  9. LAMICTAL [Concomitant]
     Indication: AFFECTIVE DISORDER
     Dosage: UNK
     Dates: start: 2012
  10. ADVIL [IBUPROFEN] [Concomitant]
     Indication: HEADACHE
     Dosage: UNK UNK, PRN
  11. NASAL PREPARATIONS [Concomitant]
     Route: 045

REACTIONS (21)
  - Gallbladder disorder [None]
  - Thrombosis [None]
  - Cholecystitis chronic [None]
  - Depression [None]
  - Fatigue [None]
  - Loss of libido [None]
  - Chest discomfort [None]
  - Nausea [None]
  - Vomiting [None]
  - Night sweats [None]
  - Vision blurred [None]
  - Pain [None]
  - Injury [None]
  - Scar [None]
  - Abdominal distension [None]
  - Flatulence [None]
  - Dyspepsia [None]
  - Constipation [None]
  - Diarrhoea [None]
  - Anxiety [None]
  - Mental disorder [None]
